FAERS Safety Report 22395862 (Version 1)
Quarter: 2023Q2

REPORT INFORMATION
  Report Type: Spontaneous
  Country: US (occurrence: US)
  Receive Date: 20230601
  Receipt Date: 20230601
  Transmission Date: 20230722
  Serious: No
  Sender: FDA-Public Use
  Company Number: US-APIL-2313630US

PATIENT
  Sex: Female

DRUGS (2)
  1. BOTOX [Suspect]
     Active Substance: ONABOTULINUMTOXINA
     Indication: Lip cosmetic procedure
     Dosage: UNK UNK, SINGLE
  2. JUVEDERM [Suspect]
     Active Substance: HYALURONIC ACID
     Indication: Lip cosmetic procedure
     Dosage: UNK

REACTIONS (2)
  - Lip swelling [Unknown]
  - Off label use [Unknown]
